FAERS Safety Report 24173190 (Version 1)
Quarter: 2024Q3

REPORT INFORMATION
  Report Type: Spontaneous
  Country: US (occurrence: None)
  Receive Date: 20240804
  Receipt Date: 20240804
  Transmission Date: 20241017
  Serious: Yes (Other)
  Sender: Public
  Company Number: None

PATIENT
  Age: 28 Year
  Sex: Male
  Weight: 74.25 kg

DRUGS (1)
  1. CEFUROXIME AXETIL [Suspect]
     Active Substance: CEFUROXIME AXETIL
     Indication: Otitis media acute
     Dosage: OTHER QUANTITY : 1 TABLET(S);?FREQUENCY : EVERY 12 HOURS;?
     Route: 048
     Dates: start: 20220411, end: 20220424

REACTIONS (7)
  - Hypersensitivity [None]
  - Skin exfoliation [None]
  - Discomfort [None]
  - Anal haemorrhage [None]
  - Psoriasis [None]
  - Anal fissure [None]
  - Pain [None]

NARRATIVE: CASE EVENT DATE: 20220423
